FAERS Safety Report 14639782 (Version 2)
Quarter: 2018Q1

REPORT INFORMATION
  Report Type: Spontaneous
  Country: US (occurrence: US)
  Receive Date: 20180315
  Receipt Date: 20180325
  Transmission Date: 20180509
  Serious: Yes (Other)
  Sender: FDA-Public Use
  Company Number: US-BEH-2018088645

PATIENT
  Age: 65 Year
  Sex: Female

DRUGS (10)
  1. INSULIN DEGLUDEC [Concomitant]
     Active Substance: INSULIN DEGLUDEC
  2. HIZENTRA [Suspect]
     Active Substance: HUMAN IMMUNOGLOBULIN G
     Indication: IMMUNODEFICIENCY COMMON VARIABLE
     Dosage: 8 G (40 ML), QW
     Route: 058
     Dates: start: 201709
  3. PLAVIX [Concomitant]
     Active Substance: CLOPIDOGREL BISULFATE
  4. CITALOPRAM HYDROBROMIDE. [Concomitant]
     Active Substance: CITALOPRAM HYDROBROMIDE
  5. MORPHINE SULFATE. [Concomitant]
     Active Substance: MORPHINE SULFATE
  6. HIZENTRA [Suspect]
     Active Substance: HUMAN IMMUNOGLOBULIN G
     Dosage: UNK
     Route: 058
     Dates: start: 201710
  7. METOPROLOL TARTRATE. [Concomitant]
     Active Substance: METOPROLOL TARTRATE
  8. INSULIN [Concomitant]
     Active Substance: INSULIN NOS
  9. LASIX [Concomitant]
     Active Substance: FUROSEMIDE
  10. VICTOZA [Concomitant]
     Active Substance: LIRAGLUTIDE

REACTIONS (4)
  - Malaise [Unknown]
  - Nausea [Unknown]
  - Cardiac failure congestive [Unknown]
  - Wheezing [Unknown]

NARRATIVE: CASE EVENT DATE: 20171210
